FAERS Safety Report 9633504 (Version 1)
Quarter: 2013Q4

REPORT INFORMATION
  Report Type: Spontaneous
  Country: US (occurrence: US)
  Receive Date: 20131021
  Receipt Date: 20131021
  Transmission Date: 20140711
  Serious: Yes (Other)
  Sender: FDA-Public Use
  Company Number: PHEH2013US021677

PATIENT
  Sex: Male

DRUGS (1)
  1. EXFORGE [Suspect]
     Dosage: 1 DF, (320 MG VALSA/5 MG AMLO)

REACTIONS (3)
  - Rib fracture [Unknown]
  - Fall [Unknown]
  - Speech disorder [Unknown]
